FAERS Safety Report 6210220-1 (Version None)
Quarter: 2009Q2

REPORT INFORMATION
  Report Type: 
  Country: None (occurrence: None)
  Receive Date: 20090601
  Receipt Date: 20090522
  Transmission Date: 20091009
  Serious: Yes (Other)
  Sender: FDA-Public Use
  Company Number: JP-MERCK-0905USA03738

PATIENT
  Age: 69 Year
  Sex: Male

DRUGS (5)
  1. PROPECIA [Suspect]
     Route: 048
     Dates: start: 20090101
  2. MAIBASTAN [Concomitant]
     Route: 048
  3. AMARYL [Concomitant]
     Route: 048
  4. HACHIMI-JIO-GAN [Concomitant]
     Route: 048
  5. BASEN [Concomitant]
     Route: 048

REACTIONS (1)
  - INTRAOCULAR PRESSURE INCREASED [None]
